FAERS Safety Report 25074793 (Version 4)
Quarter: 2025Q2

REPORT INFORMATION
  Report Type: Spontaneous
  Country: JP (occurrence: JP)
  Receive Date: 20250313
  Receipt Date: 20250421
  Transmission Date: 20250717
  Serious: Yes (Death, Other)
  Sender: UCB
  Company Number: JP-UCBJ-CD202502866UCBPHAPROD

PATIENT
  Age: 19 Year
  Sex: Male
  Weight: 72 kg

DRUGS (8)
  1. VIMPAT [Suspect]
     Active Substance: LACOSAMIDE
     Indication: Status epilepticus
     Dosage: 50 MILLIGRAM, 2X/DAY (BID)
     Route: 041
     Dates: start: 20250131, end: 20250201
  2. VIMPAT [Suspect]
     Active Substance: LACOSAMIDE
     Indication: Off label use
  3. FOSPHENYTOIN SODIUM [Suspect]
     Active Substance: FOSPHENYTOIN SODIUM
     Indication: Status epilepticus
     Route: 041
     Dates: start: 20250131, end: 20250131
  4. FOSPHENYTOIN SODIUM [Suspect]
     Active Substance: FOSPHENYTOIN SODIUM
     Route: 041
     Dates: start: 20250201, end: 20250201
  5. KEPPRA [Concomitant]
     Active Substance: LEVETIRACETAM
     Indication: Status epilepticus
     Dosage: 500 MILLIGRAM, 2X/DAY (BID)
     Route: 041
     Dates: start: 20250131, end: 20250201
  6. PHENOBAL [PHENOBARBITAL SODIUM] [Concomitant]
     Indication: Status epilepticus
     Dosage: 100 MILLIGRAM, 2X/DAY (BID)
     Route: 030
     Dates: start: 20250131, end: 20250201
  7. DIAZEPAM [Concomitant]
     Active Substance: DIAZEPAM
     Indication: Status epilepticus
     Route: 040
     Dates: start: 20250131, end: 20250131
  8. DIAZEPAM [Concomitant]
     Active Substance: DIAZEPAM
     Dosage: 2.5 MILLIGRAM, 2X/DAY (BID)
     Route: 040
     Dates: start: 20250201, end: 20250201

REACTIONS (5)
  - Cardiac arrest [Fatal]
  - Atrioventricular block complete [Fatal]
  - Acute kidney injury [Fatal]
  - Renal infarct [Fatal]
  - Off label use [Unknown]

NARRATIVE: CASE EVENT DATE: 20250131
